FAERS Safety Report 20506834 (Version 1)
Quarter: 2022Q1

REPORT INFORMATION
  Report Type: Spontaneous
  Country: US (occurrence: None)
  Receive Date: 20220222
  Receipt Date: 20220222
  Transmission Date: 20220423
  Serious: Yes (Other)
  Sender: FDA-Public Use
  Company Number: None

PATIENT
  Age: 31 Year
  Sex: Female

DRUGS (1)
  1. SOTROVIMAB [Suspect]
     Active Substance: SOTROVIMAB
     Indication: SARS-CoV-2 test positive
     Route: 041
     Dates: start: 20220218

REACTIONS (2)
  - Diarrhoea [None]
  - Dizziness [None]

NARRATIVE: CASE EVENT DATE: 20220218
